FAERS Safety Report 17667604 (Version 1)
Quarter: 2020Q2

REPORT INFORMATION
  Report Type: Spontaneous
  Country: US (occurrence: US)
  Receive Date: 20200414
  Receipt Date: 20200414
  Transmission Date: 20200713
  Serious: No
  Sender: FDA-Public Use
  Company Number: US-ELI_LILLY_AND_COMPANY-US202004004652

PATIENT
  Sex: Female

DRUGS (3)
  1. ASPIRIN [ACETYLSALICYLIC ACID] [Concomitant]
     Active Substance: ASPIRIN
     Indication: ANTIPHOSPHOLIPID SYNDROME
  2. EMGALITY [Suspect]
     Active Substance: GALCANEZUMAB-GNLM
     Indication: MIGRAINE
     Dosage: 120 MG, UNKNOWN
     Route: 058
     Dates: start: 2019
  3. CAMBIA [Concomitant]
     Active Substance: DICLOFENAC POTASSIUM
     Indication: MIGRAINE
     Dosage: UNK, PRN

REACTIONS (5)
  - Angiopathy [Unknown]
  - Palpitations [Unknown]
  - Peripheral coldness [Unknown]
  - Eye contusion [Unknown]
  - Skin discolouration [Unknown]
